FAERS Safety Report 4967520-2 (Version None)
Quarter: 2006Q2

REPORT INFORMATION
  Report Type: 
  Country: None (occurrence: None)
  Receive Date: 20060410
  Receipt Date: 20060329
  Transmission Date: 20061013
  Serious: Yes (Other)
  Sender: FDA-Public Use
  Company Number: CA-GLAXOSMITHKLINE-A0599813A

PATIENT
  Age: 60 Year
  Sex: Female

DRUGS (2)
  1. RELAFEN [Suspect]
     Indication: DRUG USE FOR UNKNOWN INDICATION
     Dosage: 500MG TWICE PER DAY
     Route: 048
     Dates: start: 20051201, end: 20060301
  2. NO CONCURRENT MEDICATION [Concomitant]

REACTIONS (3)
  - RETINAL TEAR [None]
  - VISION BLURRED [None]
  - VISUAL DISTURBANCE [None]
